FAERS Safety Report 5019624-6 (Version None)
Quarter: 2006Q2

REPORT INFORMATION
  Report Type: 
  Country: None (occurrence: None)
  Receive Date: 20060601
  Receipt Date: 20060517
  Transmission Date: 20061013
  Serious: Yes (Death, Other)
  Sender: FDA-Public Use
  Company Number: 2006BH007951

PATIENT
  Sex: 0

DRUGS (1)
  1. HEPARIN SODIUM [Suspect]
     Indication: ARTERIAL THROMBOSIS

REACTIONS (2)
  - ARTERIAL THROMBOSIS LIMB [None]
  - HEPARIN-INDUCED THROMBOCYTOPENIA [None]
